FAERS Safety Report 6197010-3 (Version None)
Quarter: 2009Q2

REPORT INFORMATION
  Report Type: 
  Country: None (occurrence: None)
  Receive Date: 20090520
  Receipt Date: 20090512
  Transmission Date: 20091009
  Serious: Yes (Other)
  Sender: FDA-Public Use
  Company Number: PHEH2009US03907

PATIENT
  Sex: Female

DRUGS (22)
  1. EXELON [Suspect]
     Dosage: 4.6 MG DAILY
     Route: 062
     Dates: start: 20080429
  2. DEPAKOTE [Concomitant]
     Dosage: 500 MG, BID
     Route: 048
  3. NAMENDA [Concomitant]
     Dosage: 10 MG, BID
     Route: 048
     Dates: start: 20080429
  4. SYNTHROID [Concomitant]
     Dosage: 88 UG, QD
     Route: 048
     Dates: start: 20080826
  5. PHENERGAN ^AVENTIS PHARMA^ [Concomitant]
     Dosage: UNK, UNK
  6. TRAMADOL HCL [Concomitant]
     Dosage: UNK, UNK
  7. TESSALON [Concomitant]
     Dosage: UNK, UNK
  8. PREMARIN [Concomitant]
     Dosage: 0.625 MG, QD
     Route: 048
     Dates: start: 20080807
  9. PREDNISONE [Concomitant]
     Dosage: 2.5 MG, UNK
     Dates: start: 20080321
  10. PRILOSEC [Concomitant]
     Dosage: 20 MG, QD
  11. VESICARE [Concomitant]
     Dosage: 10 MG, QD
     Route: 048
     Dates: start: 20080429
  12. LEXAPRO [Concomitant]
     Dosage: 5 MG, QD
     Route: 048
     Dates: start: 20080429
  13. EPIPEN [Concomitant]
     Dosage: 0.3 MG, PRN
  14. FLEXERIL [Concomitant]
     Dosage: 10 MG, UNK
     Dates: start: 20080321
  15. BUSPIRONE HCL [Concomitant]
     Dosage: 15 MG, BID
     Route: 048
     Dates: start: 20080321
  16. FUROSEMIDE [Concomitant]
     Dosage: 20 MG, QD
     Route: 048
     Dates: start: 20080804
  17. POTASSIUM CHLORIDE [Concomitant]
     Dosage: UNK, UNK
  18. HYDROCHLOROTHIAZIDE [Concomitant]
     Dosage: 12.5 MG, QD
     Route: 048
  19. PREVACID [Concomitant]
     Dosage: 30 MG, QD
     Route: 048
     Dates: start: 20080429
  20. NASONEX [Concomitant]
     Dosage: 50 UG, PRN
     Dates: start: 20080429
  21. ALBUTEROL [Concomitant]
     Dosage: 90 UG, AS DIRECTED
  22. PROVENTIL [Concomitant]
     Dosage: 90 MCG, 2 PUFFS, QID, PRN

REACTIONS (7)
  - BALANCE DISORDER [None]
  - COSTOCHONDRITIS [None]
  - DEPRESSION [None]
  - FALL [None]
  - MUSCULOSKELETAL CHEST PAIN [None]
  - OSTEOPENIA [None]
  - VOMITING [None]
